FAERS Safety Report 9487052 (Version 1)
Quarter: 2013Q3

REPORT INFORMATION
  Report Type: Spontaneous
  Country: US (occurrence: US)
  Receive Date: 20130829
  Receipt Date: 20130829
  Transmission Date: 20140515
  Serious: Yes (Other)
  Sender: FDA-Public Use
  Company Number: US-TEVA-429213USA

PATIENT
  Age: 30 Year
  Sex: Female
  Weight: 62.2 kg

DRUGS (1)
  1. PLAN B ONE-STEP [Suspect]
     Indication: POST COITAL CONTRACEPTION
     Dosage: 1.5 MILLIGRAM DAILY;
     Route: 048
     Dates: start: 201305, end: 201305

REACTIONS (6)
  - Ectopic pregnancy [Recovered/Resolved]
  - Menorrhagia [Recovered/Resolved]
  - Breast tenderness [Recovered/Resolved]
  - Fatigue [Recovered/Resolved]
  - Pelvic pain [Recovered/Resolved]
  - Drug ineffective [Unknown]
